FAERS Safety Report 8294388-1 (Version None)
Quarter: 2012Q2

REPORT INFORMATION
  Report Type: 
  Country: None (occurrence: None)
  Receive Date: 20120413
  Receipt Date: 20120402
  Transmission Date: 20120825
  Serious: Yes (Other)
  Sender: FDA-Public Use
  Company Number: 2012P1011960

PATIENT
  Age: 63 Year
  Sex: Male
  Weight: 68 kg

DRUGS (5)
  1. FUROSEMIDE [Concomitant]
  2. VASOPRESIN [Concomitant]
  3. ASPIRIN [Concomitant]
  4. VALSARTAN [Concomitant]
  5. LIDOCAINE [Suspect]
     Indication: ARRHYTHMIA
     Dosage: 100 MG; ;IV 1 MG/MIN; ;IVDRP 100 MG; ;IV 2 MG/MIN;
     Route: 042

REACTIONS (2)
  - VITREOUS FLOATERS [None]
  - BLINDNESS TRANSIENT [None]
